FAERS Safety Report 20768234 (Version 1)
Quarter: 2022Q2

REPORT INFORMATION
  Report Type: Spontaneous
  Country: CA (occurrence: CA)
  Receive Date: 20220429
  Receipt Date: 20220429
  Transmission Date: 20220721
  Serious: Yes (Death, Hospitalization)
  Sender: FDA-Public Use
  Company Number: CA-009507513-2204CAN009316

PATIENT
  Age: 49 Year
  Sex: Male

DRUGS (3)
  1. TEMODAL [Suspect]
     Active Substance: TEMOZOLOMIDE
     Indication: Glioblastoma
     Dosage: UNK, DOSAGE FORM: NOT SPECIFIED
  2. LOMUSTINE [Suspect]
     Active Substance: LOMUSTINE
     Dosage: UNK, DOSAGE FORM: NOT SPECIFIED
  3. SEPTRA [Concomitant]
     Active Substance: SULFAMETHOXAZOLE\TRIMETHOPRIM
     Dosage: UNK

REACTIONS (5)
  - Drug ineffective [Fatal]
  - Eastern Cooperative Oncology Group performance status worsened [Fatal]
  - Neutropenia [Fatal]
  - Seizure [Fatal]
  - Thrombocytopenia [Fatal]
